FAERS Safety Report 20801465 (Version 1)
Quarter: 2022Q2

REPORT INFORMATION
  Report Type: Spontaneous
  Country: US (occurrence: US)
  Receive Date: 20220509
  Receipt Date: 20220509
  Transmission Date: 20220721
  Serious: Yes (Other)
  Sender: FDA-Public Use
  Company Number: US-SANOFI-01088035

PATIENT
  Age: 53 Year
  Sex: Female

DRUGS (7)
  1. DUPIXENT [Suspect]
     Active Substance: DUPILUMAB
     Dosage: UNK
     Route: 058
  2. FLUTICASONE PROPIONATE [Concomitant]
     Active Substance: FLUTICASONE PROPIONATE
  3. FORMOTEROL [Concomitant]
     Active Substance: FORMOTEROL
  4. TIOTROPIUM [Concomitant]
     Active Substance: TIOTROPIUM
  5. MONTELUKAST [Concomitant]
     Active Substance: MONTELUKAST SODIUM
     Route: 048
  6. PREDNISOLONE [Concomitant]
     Active Substance: PREDNISOLONE
  7. OMALIZUMAB [Concomitant]
     Active Substance: OMALIZUMAB

REACTIONS (3)
  - Neuropathy peripheral [Unknown]
  - Oedema peripheral [Unknown]
  - Hypoaesthesia [Unknown]
